FAERS Safety Report 6249975-9 (Version None)
Quarter: 2009Q2

REPORT INFORMATION
  Report Type: 
  Country: None (occurrence: None)
  Receive Date: 20090625
  Receipt Date: 20090612
  Transmission Date: 20091009
  Serious: Yes (Death, Hospitalization)
  Sender: FDA-Public Use
  Company Number: 2009AL003464

PATIENT
  Age: 49 Year
  Sex: Male
  Weight: 64.4108 kg

DRUGS (5)
  1. DIGOXIN [Suspect]
     Dosage: 0.25MG,  BID, PO
     Route: 048
  2. COREG [Concomitant]
  3. AVALIDE [Concomitant]
  4. LANTUS [Concomitant]
  5. XALATAN [Concomitant]

REACTIONS (8)
  - CARDIAC FAILURE CONGESTIVE [None]
  - CARDIOMYOPATHY [None]
  - DIZZINESS [None]
  - DYSPEPSIA [None]
  - FATIGUE [None]
  - HEADACHE [None]
  - HEART RATE IRREGULAR [None]
  - NAUSEA [None]
